FAERS Safety Report 4457563-X (Version None)
Quarter: 2004Q3

REPORT INFORMATION
  Report Type: 
  Country: None (occurrence: None)
  Receive Date: 20040922
  Receipt Date: 20040910
  Transmission Date: 20050211
  Serious: Yes (Death)
  Sender: FDA-Public Use
  Company Number: 2004UW19143

PATIENT
  Sex: Male

DRUGS (2)
  1. IRESSA [Suspect]
     Indication: OESOPHAGEAL CARCINOMA
     Dosage: 250 MG DAILY PO
     Route: 048
  2. CELEBREX [Suspect]
     Indication: OESOPHAGEAL CARCINOMA
     Dosage: 400 MG BID

REACTIONS (1)
  - PULMONARY FIBROSIS [None]
